FAERS Safety Report 10792400 (Version 1)
Quarter: 2015Q1

REPORT INFORMATION
  Report Type: Spontaneous
  Country: US (occurrence: US)
  Receive Date: 20150213
  Receipt Date: 20150213
  Transmission Date: 20150721
  Serious: No
  Sender: FDA-Public Use
  Company Number: US-PFIZER INC-2015058533

PATIENT
  Age: 36 Year
  Sex: Female
  Weight: 44 kg

DRUGS (3)
  1. NORCO [Concomitant]
     Active Substance: ACETAMINOPHEN\HYDROCODONE BITARTRATE
     Indication: PAIN
  2. PREMARIN TABLET [Concomitant]
     Indication: HORMONE REPLACEMENT THERAPY
  3. GABAPENTIN. [Suspect]
     Active Substance: GABAPENTIN

REACTIONS (2)
  - Drug ineffective [Recovered/Resolved]
  - Feeling abnormal [Recovered/Resolved]
